FAERS Safety Report 12118569 (Version 3)
Quarter: 2016Q2

REPORT INFORMATION
  Report Type: Spontaneous
  Country: US (occurrence: US)
  Receive Date: 20160226
  Receipt Date: 20160525
  Transmission Date: 20160815
  Serious: Yes (Hospitalization)
  Sender: FDA-Public Use
  Company Number: US-PFIZER INC-2016112039

PATIENT
  Age: 65 Year
  Sex: Female

DRUGS (2)
  1. PRISTIQ EXTENDED-RELEASE [Suspect]
     Active Substance: DESVENLAFAXINE SUCCINATE
     Indication: MAJOR DEPRESSION
     Dosage: 50 MG, 1X/DAY
  2. PRISTIQ EXTENDED-RELEASE [Suspect]
     Active Substance: DESVENLAFAXINE SUCCINATE
     Dosage: UNK

REACTIONS (8)
  - Malaise [Recovered/Resolved]
  - Headache [Unknown]
  - Emotional disorder [Unknown]
  - Drug ineffective [Unknown]
  - Anger [Unknown]
  - Feeling abnormal [Unknown]
  - Agitation [Unknown]
  - Medication residue present [Unknown]
